FAERS Safety Report 5365995-0 (Version None)
Quarter: 2007Q2

REPORT INFORMATION
  Report Type: 
  Country: None (occurrence: None)
  Receive Date: 20070611
  Receipt Date: 20070327
  Transmission Date: 20071010
  Serious: Yes (Hospitalization, Other)
  Sender: FDA-Public Use
  Company Number: USA-2007-0026921

PATIENT
  Age: 22 Year
  Sex: Male

DRUGS (1)
  1. OXYCONTIN [Suspect]
     Indication: DRUG ABUSER
     Dosage: ORAL
     Route: 048

REACTIONS (2)
  - DRUG ABUSER [None]
  - INTENTIONAL OVERDOSE [None]
